FAERS Safety Report 4869606-X (Version None)
Quarter: 2005Q4

REPORT INFORMATION
  Report Type: 
  Country: None (occurrence: None)
  Receive Date: 20051227
  Receipt Date: 20051213
  Transmission Date: 20060501
  Serious: Yes (Other)
  Sender: FDA-Public Use
  Company Number: 200511122

PATIENT
  Age: 58 Year
  Sex: Male

DRUGS (1)
  1. ALESION             (EPINASTINE) [Suspect]
     Dosage: 10 MG QD PO
     Route: 048
     Dates: start: 20030901, end: 20031001

REACTIONS (1)
  - DRUG ERUPTION [None]
